FAERS Safety Report 6304035-3 (Version None)
Quarter: 2009Q3

REPORT INFORMATION
  Report Type: 
  Country: None (occurrence: None)
  Receive Date: 20090810
  Receipt Date: 20090810
  Transmission Date: 20100115
  Serious: Yes (Death)
  Sender: FDA-Public Use
  Company Number: US-PFIZER INC-2009230865

PATIENT
  Age: 25 Year
  Sex: Male

DRUGS (2)
  1. GEODON [Suspect]
  2. ZYPREXA [Suspect]
     Dosage: 2.5 MG, UNK

REACTIONS (2)
  - DIABETIC KETOACIDOSIS [None]
  - WEIGHT INCREASED [None]
